FAERS Safety Report 16900496 (Version 1)
Quarter: 2019Q4

REPORT INFORMATION
  Report Type: Spontaneous
  Country: FR (occurrence: FR)
  Receive Date: 20191009
  Receipt Date: 20191009
  Transmission Date: 20200122
  Serious: Yes (Other)
  Sender: FDA-Public Use
  Company Number: FR-ANIPHARMA-2019-FR-000210

PATIENT
  Age: 58 Year
  Sex: Female
  Weight: 75 kg

DRUGS (1)
  1. ARIMIDEX [Suspect]
     Active Substance: ANASTROZOLE
     Indication: HORMONE THERAPY
     Dosage: 1 MG DAILY
     Route: 048
     Dates: start: 201708, end: 2018

REACTIONS (11)
  - Snoring [Unknown]
  - Headache [Unknown]
  - Dyspnoea [Unknown]
  - Burning sensation [Unknown]
  - Choking [Unknown]
  - Carpal tunnel syndrome [Unknown]
  - Suicidal ideation [Unknown]
  - Pain [Not Recovered/Not Resolved]
  - Fatigue [Unknown]
  - Gastrointestinal disorder [Unknown]
  - Aggression [Unknown]

NARRATIVE: CASE EVENT DATE: 2017
